FAERS Safety Report 12459688 (Version 3)
Quarter: 2016Q4

REPORT INFORMATION
  Report Type: Spontaneous
  Country: CA (occurrence: CA)
  Receive Date: 20160613
  Receipt Date: 20161223
  Transmission Date: 20170207
  Serious: Yes (Other)
  Sender: FDA-Public Use
  Company Number: CA-AMGEN-CANSP2016074407

PATIENT
  Age: 18 Year
  Sex: Female

DRUGS (24)
  1. METHOTREXATE SODIUM. [Suspect]
     Active Substance: METHOTREXATE SODIUM
     Dosage: 25 MG, QWK
     Route: 065
     Dates: start: 2003
  2. METHOTREXATE SODIUM. [Suspect]
     Active Substance: METHOTREXATE SODIUM
     Dosage: 20 MG, QWK
     Route: 058
     Dates: start: 2005, end: 20050912
  3. METHOTREXATE SODIUM. [Suspect]
     Active Substance: METHOTREXATE SODIUM
     Dosage: 25 MG, QWK
     Route: 058
     Dates: start: 20050912, end: 20100804
  4. METHOTREXATE SODIUM. [Suspect]
     Active Substance: METHOTREXATE SODIUM
     Dosage: UNK
     Route: 048
  5. METHYLPREDNISOLONE ACETATE. [Concomitant]
     Active Substance: METHYLPREDNISOLONE ACETATE
     Dosage: 60 MG, UNK
  6. NAPROXEN SODIUM. [Concomitant]
     Active Substance: NAPROXEN SODIUM
     Indication: DISCOMFORT
     Dosage: 375 MG, QD
  7. ENBREL [Suspect]
     Active Substance: ETANERCEPT
     Dosage: 50 MG, QWK
     Route: 058
     Dates: start: 20090619, end: 2009
  8. FOLIC ACID. [Concomitant]
     Active Substance: FOLIC ACID
     Dosage: 5 MG, 2 TIMES/WK
     Route: 065
     Dates: start: 20090619
  9. METHOTREXATE SODIUM. [Suspect]
     Active Substance: METHOTREXATE SODIUM
     Dosage: 17.5 UNK, UNK
     Route: 065
     Dates: start: 2003
  10. METHOTREXATE SODIUM. [Suspect]
     Active Substance: METHOTREXATE SODIUM
     Dosage: UNK
     Route: 058
     Dates: start: 2014
  11. ARAVA [Suspect]
     Active Substance: LEFLUNOMIDE
     Indication: RHEUMATOID ARTHRITIS
     Dosage: 10 MG, QD
     Route: 065
     Dates: start: 20131007
  12. NAPROSYN [Concomitant]
     Active Substance: NAPROXEN
     Dosage: 375 MG, QD AS NEEDED
     Route: 065
     Dates: end: 20080912
  13. FOLIC ACID. [Concomitant]
     Active Substance: FOLIC ACID
     Dosage: 1 MG, 6 DAYS PER WEEK
     Route: 065
     Dates: end: 20090619
  14. RITUXIMAB [Suspect]
     Active Substance: RITUXIMAB
     Indication: RHEUMATOID ARTHRITIS
     Dosage: UNK
     Route: 065
  15. SIMPONI [Suspect]
     Active Substance: GOLIMUMAB
     Indication: RHEUMATOID ARTHRITIS
     Dosage: 50 MG, QMO
     Route: 058
     Dates: start: 2010, end: 20160520
  16. ACTEMRA [Suspect]
     Active Substance: TOCILIZUMAB
     Indication: RHEUMATOID ARTHRITIS
     Dosage: UNK, QMO
     Route: 065
     Dates: start: 2013
  17. METHOTREXATE SODIUM. [Suspect]
     Active Substance: METHOTREXATE SODIUM
     Indication: RHEUMATOID ARTHRITIS
     Dosage: 25 MG, QWK
     Route: 058
     Dates: start: 2003
  18. ENBREL [Suspect]
     Active Substance: ETANERCEPT
     Indication: RHEUMATOID ARTHRITIS
     Dosage: 25 MG, QWK
     Route: 058
     Dates: start: 200501, end: 200809
  19. ENBREL [Suspect]
     Active Substance: ETANERCEPT
     Dosage: 50 MG, UNK
     Route: 058
     Dates: start: 2008
  20. METHOTREXATE SODIUM. [Suspect]
     Active Substance: METHOTREXATE SODIUM
     Dosage: 17.5 MG, QWK
     Route: 058
     Dates: start: 20100804
  21. LEFLUNOMIDE. [Concomitant]
     Active Substance: LEFLUNOMIDE
     Indication: PRODUCT USED FOR UNKNOWN INDICATION
     Dosage: 10 MG, QD
     Route: 065
     Dates: start: 20131007
  22. METHOTREXATE SODIUM. [Suspect]
     Active Substance: METHOTREXATE SODIUM
     Dosage: 25 MG, QWK
     Route: 058
     Dates: start: 20131007
  23. NAPROSYN [Concomitant]
     Active Substance: NAPROXEN
     Dosage: 375 MG, BID
     Route: 065
     Dates: start: 20080912
  24. NAPROXEN SODIUM. [Concomitant]
     Active Substance: NAPROXEN SODIUM
     Indication: RHEUMATOID ARTHRITIS
     Dosage: 375 MG, BID

REACTIONS (26)
  - Peripheral swelling [Unknown]
  - Synovitis [Unknown]
  - Inflammation [Unknown]
  - Condition aggravated [Unknown]
  - Musculoskeletal stiffness [Unknown]
  - Drug intolerance [Unknown]
  - Joint swelling [Unknown]
  - Joint range of motion decreased [Unknown]
  - Bone erosion [Unknown]
  - Neck pain [Unknown]
  - Rheumatoid nodule [Unknown]
  - Foot deformity [Unknown]
  - Arthralgia [Unknown]
  - Discomfort [Unknown]
  - Treatment failure [Unknown]
  - Drug ineffective [Unknown]
  - Bone disorder [Unknown]
  - Diarrhoea [Unknown]
  - Joint crepitation [Unknown]
  - Joint effusion [Unknown]
  - Limb discomfort [Unknown]
  - Musculoskeletal discomfort [Unknown]
  - Arthritis [Unknown]
  - Activities of daily living impaired [Unknown]
  - Synovial cyst [Unknown]
  - Pain in extremity [Unknown]

NARRATIVE: CASE EVENT DATE: 200808
